FAERS Safety Report 6419567-7 (Version None)
Quarter: 2009Q4

REPORT INFORMATION
  Report Type: 
  Country: None (occurrence: None)
  Receive Date: 20091029
  Receipt Date: 20091027
  Transmission Date: 20100525
  Serious: Yes (Death, Hospitalization)
  Sender: FDA-Public Use
  Company Number: CA-B.I. PHARMACEUTICALS,INC./RIDGEFIELD-2009-CN-00643CN

PATIENT
  Age: 61 Year
  Sex: Female

DRUGS (3)
  1. CATAPRES [Suspect]
     Indication: PAIN
     Route: 037
  2. HYDROMORPHONE [Concomitant]
     Indication: PAIN
     Route: 037
  3. BUPIVACAINE [Concomitant]
     Indication: PAIN
     Route: 037

REACTIONS (1)
  - COLON CANCER METASTATIC [None]
